FAERS Safety Report 23106280 (Version 1)
Quarter: 2023Q4

REPORT INFORMATION
  Report Type: Spontaneous
  Country: PT (occurrence: PT)
  Receive Date: 20231025
  Receipt Date: 20231025
  Transmission Date: 20240110
  Serious: Yes (Life-Threatening, Hospitalization, Other)
  Sender: FDA-Public Use
  Company Number: PT-FreseniusKabi-FK202316823

PATIENT
  Sex: Male

DRUGS (2)
  1. MAGNESIUM SULFATE [Suspect]
     Active Substance: MAGNESIUM SULFATE\MAGNESIUM SULFATE HEPTAHYDRATE
     Indication: HELLP syndrome
     Dosage: THEN MAINTENANCE DOSE OF 2G/HOUR.
     Route: 042
  2. MAGNESIUM SULFATE [Suspect]
     Active Substance: MAGNESIUM SULFATE\MAGNESIUM SULFATE HEPTAHYDRATE
     Indication: Pre-eclampsia

REACTIONS (3)
  - Hypermagnesaemia [Recovered/Resolved]
  - Apgar score low [Recovered/Resolved]
  - Foetal exposure during pregnancy [Unknown]
